FAERS Safety Report 5146633-9 (Version None)
Quarter: 2006Q4

REPORT INFORMATION
  Report Type: 
  Country: None (occurrence: None)
  Receive Date: 20061109
  Receipt Date: 20061003
  Transmission Date: 20070319
  Serious: Yes (Life-Threatening)
  Sender: FDA-Public Use
  Company Number: FR-BRISTOL-MYERS SQUIBB COMPANY-13533351

PATIENT
  Age: 53 Year
  Sex: Male

DRUGS (6)
  1. GLUCOPHAGE [Suspect]
     Indication: DIABETES MELLITUS NON-INSULIN-DEPENDENT
     Route: 048
  2. VIREAD [Suspect]
     Indication: HIV INFECTION
  3. NEVIRAPINE [Suspect]
     Indication: HIV INFECTION
  4. GLIMEPIRIDE [Concomitant]
     Indication: DIABETES MELLITUS
  5. APROVEL [Concomitant]
     Indication: HYPERTENSION
  6. INSULIN GLARGINE [Concomitant]
     Route: 058

REACTIONS (3)
  - ACUTE RESPIRATORY DISTRESS SYNDROME [None]
  - COMA [None]
  - LACTIC ACIDOSIS [None]
